FAERS Safety Report 16490523 (Version 2)
Quarter: 2019Q3

REPORT INFORMATION
  Report Type: Report from Study
  Country: TW (occurrence: TW)
  Receive Date: 20190628
  Receipt Date: 20190705
  Transmission Date: 20191004
  Serious: Yes (Life-Threatening, Other)
  Sender: FDA-Public Use
  Company Number: PHHY2019TW109642

PATIENT
  Age: 70 Year
  Sex: Male

DRUGS (48)
  1. VOTRIENT [Suspect]
     Active Substance: PAZOPANIB HYDROCHLORIDE
     Indication: RENAL CELL CARCINOMA
     Dosage: 800 MG, QD
     Route: 048
     Dates: start: 20180331
  2. VOTRIENT [Suspect]
     Active Substance: PAZOPANIB HYDROCHLORIDE
     Dosage: 800 MG, QD
     Route: 048
     Dates: end: 20190523
  3. FUROSEMIDE. [Concomitant]
     Active Substance: FUROSEMIDE
     Dosage: 20 OT, UNK
     Route: 042
     Dates: start: 20180417, end: 20180417
  4. FUROSEMIDE. [Concomitant]
     Active Substance: FUROSEMIDE
     Dosage: 20 OT, UNK
     Route: 042
     Dates: start: 20180517, end: 20180517
  5. CALCIUM CHLORIDE ANHYDROUS [Concomitant]
     Active Substance: CALCIUM CHLORIDE ANHYDROUS
     Indication: PROPHYLAXIS
     Dosage: 10.8 OT, UNK
     Route: 042
     Dates: start: 20180506, end: 20180506
  6. FUROSEMIDE. [Concomitant]
     Active Substance: FUROSEMIDE
     Indication: ACUTE KIDNEY INJURY
     Dosage: 20 OT, UNK
     Route: 042
     Dates: start: 20180412, end: 20180414
  7. AMIODARONE HCL [Concomitant]
     Active Substance: AMIODARONE HYDROCHLORIDE
     Dosage: 200 OT, UNK
     Route: 048
     Dates: start: 20180517, end: 20180517
  8. AMIODARONE HCL [Concomitant]
     Active Substance: AMIODARONE HYDROCHLORIDE
     Dosage: 200 OT, UNK
     Route: 048
     Dates: start: 20180519, end: 20180525
  9. MORPHINE SULFATE. [Concomitant]
     Active Substance: MORPHINE SULFATE
     Dosage: 5 OT, UNK
     Route: 048
     Dates: start: 20180515, end: 20180515
  10. MORPHINE SULFATE. [Concomitant]
     Active Substance: MORPHINE SULFATE
     Dosage: 3 OT, UNK
     Route: 048
     Dates: start: 20180515, end: 20180517
  11. FUROSEMIDE. [Concomitant]
     Active Substance: FUROSEMIDE
     Dosage: 20 OT, UNK
     Route: 042
     Dates: start: 20180430, end: 20180430
  12. AMIODARONE HCL [Concomitant]
     Active Substance: AMIODARONE HYDROCHLORIDE
     Dosage: 900 OT, UNK
     Route: 042
     Dates: start: 20180418, end: 20180418
  13. AMIODARONE HCL [Concomitant]
     Active Substance: AMIODARONE HYDROCHLORIDE
     Dosage: 200 OT, UNK
     Route: 048
     Dates: start: 20180426, end: 20180508
  14. CALCITONIN, SALMON [Concomitant]
     Active Substance: CALCITONIN SALMON
     Indication: PROPHYLAXIS
     Dosage: 350 OT, UNK
     Route: 058
     Dates: start: 20180423, end: 20180425
  15. NOREPINEPHRINE BITARTRATE. [Concomitant]
     Active Substance: NOREPINEPHRINE BITARTRATE
     Indication: PROPHYLAXIS
     Dosage: 8 OT, UNK
     Route: 042
     Dates: start: 20180416, end: 20180416
  16. ALPRAZOLAM. [Concomitant]
     Active Substance: ALPRAZOLAM
     Indication: PROPHYLAXIS
     Dosage: 0.5 OT, UNK
     Route: 048
     Dates: start: 20180511, end: 20180517
  17. SPIRONOLACTONE. [Concomitant]
     Active Substance: SPIRONOLACTONE
     Indication: ACUTE KIDNEY INJURY
     Dosage: 25 OT, UNK
     Route: 048
     Dates: start: 20180418, end: 20180420
  18. FUROSEMIDE. [Concomitant]
     Active Substance: FUROSEMIDE
     Dosage: 10 OT, UNK
     Route: 042
     Dates: start: 20180424, end: 20180424
  19. CALCITONIN, SALMON [Concomitant]
     Active Substance: CALCITONIN SALMON
     Dosage: 700 OT, UNK
     Route: 042
     Dates: start: 20180427, end: 20180427
  20. MORPHINE SULFATE. [Concomitant]
     Active Substance: MORPHINE SULFATE
     Dosage: 5 OT, UNK
     Route: 048
     Dates: start: 20180329, end: 20180416
  21. FUROSEMIDE. [Concomitant]
     Active Substance: FUROSEMIDE
     Dosage: 40 OT, UNK
     Route: 048
     Dates: start: 20180415, end: 20180415
  22. FUROSEMIDE. [Concomitant]
     Active Substance: FUROSEMIDE
     Dosage: 20 OT, UNK
     Route: 042
     Dates: start: 20180420, end: 20180421
  23. CHLORHEXIDINE GLUCONATE. [Concomitant]
     Active Substance: CHLORHEXIDINE GLUCONATE
     Indication: PROPHYLAXIS
     Dosage: 20 OT, UNK
     Route: 065
     Dates: start: 20180416, end: 20180523
  24. CALCITONIN, SALMON [Concomitant]
     Active Substance: CALCITONIN SALMON
     Dosage: 700 OT, UNK
     Route: 058
     Dates: start: 20180426, end: 20180426
  25. MIDAZOLAM HCL [Concomitant]
     Active Substance: MIDAZOLAM HYDROCHLORIDE
     Indication: ASPIRATION PLEURAL CAVITY
     Dosage: 2.5 OT, UNK
     Route: 042
     Dates: start: 20180416, end: 20180416
  26. ZOPICLONE [Concomitant]
     Active Substance: ZOPICLONE
     Indication: PROPHYLAXIS
     Dosage: 7.5 OT, UNK
     Route: 048
     Dates: start: 20180511, end: 20180517
  27. ACETAMINOPHEN. [Concomitant]
     Active Substance: ACETAMINOPHEN
     Indication: ARTHRALGIA
  28. TAMSULOSIN HCL [Concomitant]
     Active Substance: TAMSULOSIN HYDROCHLORIDE
     Indication: PROPHYLAXIS
     Dosage: 0.2 OT, UNK
     Route: 048
     Dates: start: 20180503, end: 20180507
  29. AMIODARONE HCL [Concomitant]
     Active Substance: AMIODARONE HYDROCHLORIDE
     Dosage: 150 OT, UNK
     Route: 042
     Dates: start: 20180506, end: 20180506
  30. ANTIBIOTICS-RESISTANT LACTIC ACID BACTERIAE [Concomitant]
     Active Substance: UNSPECIFIED INGREDIENT
     Indication: PROPHYLAXIS
     Dosage: 6 OT, UNK
     Route: 048
     Dates: start: 20180428, end: 20180429
  31. CALCIUM CHLORIDE ANHYDROUS [Concomitant]
     Active Substance: CALCIUM CHLORIDE ANHYDROUS
     Dosage: 10.8 OT, UNK
     Route: 042
     Dates: start: 20180511, end: 20180512
  32. FEBUXOSTAT. [Concomitant]
     Active Substance: FEBUXOSTAT
     Indication: GOUT
     Dosage: 40 OT, UNK
     Route: 048
     Dates: start: 20180311, end: 20180517
  33. MORPHINE HCL [Concomitant]
     Active Substance: MORPHINE HYDROCHLORIDE
     Indication: PAIN MANAGEMENT
     Dosage: 5 OT, UNK
     Route: 042
     Dates: start: 20180517, end: 20180523
  34. NOREPINEPHRINE BITARTRATE. [Concomitant]
     Active Substance: NOREPINEPHRINE BITARTRATE
     Dosage: 16 OT, UNK
     Route: 042
     Dates: start: 20180416, end: 20180416
  35. FUROSEMIDE. [Concomitant]
     Active Substance: FUROSEMIDE
     Dosage: 40 OT, UNK
     Route: 048
     Dates: start: 20180418, end: 20180420
  36. FUROSEMIDE. [Concomitant]
     Active Substance: FUROSEMIDE
     Dosage: 10 OT, UNK
     Route: 042
     Dates: start: 20180516, end: 20180516
  37. ACETAMINOPHEN. [Concomitant]
     Active Substance: ACETAMINOPHEN
     Indication: PROPHYLAXIS
     Dosage: 500 OT, UNK
     Route: 048
     Dates: start: 20180320, end: 20180321
  38. ACETAMINOPHEN. [Concomitant]
     Active Substance: ACETAMINOPHEN
     Indication: BACK PAIN
     Dosage: 500 OT, UNK
     Route: 048
     Dates: start: 20180501, end: 20180523
  39. CORTISONE ACETATE. [Concomitant]
     Active Substance: CORTISONE ACETATE
     Indication: PROPHYLAXIS
     Dosage: 25 OT, UNK
     Route: 048
     Dates: start: 20180508, end: 20180517
  40. MORPHINE [Concomitant]
     Active Substance: MORPHINE
     Indication: PAIN
     Dosage: 3 OT, UNK
     Route: 042
     Dates: start: 20180329, end: 20180329
  41. ACETYLCYSTEINE. [Concomitant]
     Active Substance: ACETYLCYSTEINE
     Indication: PROPHYLAXIS
     Dosage: 1200 OT, UNK
     Route: 048
     Dates: start: 20180424, end: 20180426
  42. AMIODARONE HCL [Concomitant]
     Active Substance: AMIODARONE HYDROCHLORIDE
     Indication: PROPHYLAXIS
     Dosage: 150 OT, UNK
     Route: 042
     Dates: start: 20180418, end: 20180418
  43. AMIODARONE HCL [Concomitant]
     Active Substance: AMIODARONE HYDROCHLORIDE
     Dosage: 200 OT, UNK
     Route: 048
     Dates: start: 20180508, end: 20180516
  44. CALCIUM POLYSTYRENE SULFONATE [Concomitant]
     Active Substance: CALCIUM POLYSTYRENE SULFONATE
     Indication: PROPHYLAXIS
     Dosage: 15 OT, UNK
     Route: 048
     Dates: start: 20180517, end: 20180517
  45. FLUMAZENIL. [Concomitant]
     Active Substance: FLUMAZENIL
     Indication: BRONCHOSCOPY
     Dosage: 0.5 OT, UNK
     Route: 042
     Dates: start: 20180320, end: 20180320
  46. MORPHINE SULFATE. [Concomitant]
     Active Substance: MORPHINE SULFATE
     Indication: BREAKTHROUGH PAIN
     Dosage: 3 OT, UNK
     Route: 048
     Dates: start: 20180324, end: 20180329
  47. SERTACONAZOLE NITRATE [Concomitant]
     Active Substance: SERTACONAZOLE NITRATE
     Indication: PROPHYLAXIS
     Dosage: 1 OT, UNK
     Route: 061
     Dates: start: 20180419, end: 20180504
  48. MAGNESIUM SULFATE. [Concomitant]
     Active Substance: MAGNESIUM SULFATE
     Indication: PROPHYLAXIS
     Dosage: 16 OT, UNK
     Route: 042
     Dates: start: 20180506, end: 20180506

REACTIONS (1)
  - Pneumonia [Unknown]

NARRATIVE: CASE EVENT DATE: 20180416
